FAERS Safety Report 4328439-3 (Version None)
Quarter: 2004Q1

REPORT INFORMATION
  Report Type: 
  Country: None (occurrence: None)
  Receive Date: 20040319
  Receipt Date: 20040213
  Transmission Date: 20041129
  Serious: No
  Sender: FDA-Public Use
  Company Number: US-JNJFOC-20040204095

PATIENT
  Age: 33 Year
  Sex: Female
  Weight: 53.0709 kg

DRUGS (5)
  1. ORTHO EVRA [Suspect]
     Indication: CONTRACEPTION
     Dosage: 1 DOSE(S), 3 IN 4 WEEK, TRANSDERMAL
     Route: 062
     Dates: start: 20040104
  2. POTASSIUM (POTASSIUM) [Concomitant]
  3. DURA B COMPLEX (B-KOMPLEX ^LECIVA^) [Concomitant]
  4. CALCIUM (CALCIUM) [Concomitant]
  5. MAGNESIUM (MAGNESIUM) [Concomitant]

REACTIONS (3)
  - ABDOMINAL PAIN [None]
  - INSOMNIA [None]
  - METRORRHAGIA [None]
